FAERS Safety Report 6154806-1 (Version None)
Quarter: 2009Q2

REPORT INFORMATION
  Report Type: 
  Country: None (occurrence: None)
  Receive Date: 20090414
  Receipt Date: 20090406
  Transmission Date: 20091009
  Serious: Yes (Other)
  Sender: FDA-Public Use
  Company Number: PHHY2009GB11214

PATIENT
  Sex: Female

DRUGS (3)
  1. CLOZARIL [Suspect]
     Indication: SCHIZOPHRENIA
     Dosage: 175 MG, UNK
     Route: 048
     Dates: start: 20070301
  2. CARBIMAZOLE [Concomitant]
     Indication: HYPERTHYROIDISM
     Dosage: 20 MG
     Route: 048
     Dates: start: 20090201
  3. CARBIMAZOLE [Concomitant]

REACTIONS (4)
  - BUNDLE BRANCH BLOCK RIGHT [None]
  - HYPERTHYROIDISM [None]
  - INADEQUATE DIET [None]
  - WEIGHT INCREASED [None]
